FAERS Safety Report 19717754 (Version 1)
Quarter: 2021Q3

REPORT INFORMATION
  Report Type: Report from Study
  Country: US (occurrence: US)
  Receive Date: 20210819
  Receipt Date: 20210819
  Transmission Date: 20211014
  Serious: Yes (Hospitalization, Other)
  Sender: FDA-Public Use
  Company Number: US-GILEAD-2021-0544139

PATIENT
  Sex: Male

DRUGS (27)
  1. LEVOTHYROXINE. [Concomitant]
     Active Substance: LEVOTHYROXINE
  2. BENADRYL ALLERGY [CETIRIZINE HYDROCHLORIDE] [Concomitant]
     Active Substance: CETIRIZINE HYDROCHLORIDE
  3. LEVOCARNITINE. [Concomitant]
     Active Substance: LEVOCARNITINE
  4. PHENOBARB [PHENOBARBITAL] [Concomitant]
  5. CALCIUM CARBONATE. [Concomitant]
     Active Substance: CALCIUM CARBONATE
  6. AZTREONAM LYSINE [Suspect]
     Active Substance: AZTREONAM LYSINE
     Indication: CYSTIC FIBROSIS
     Dosage: 75 MG, TID, EVERY OTHER MONTH
     Route: 055
     Dates: start: 20160301
  7. BANZEL [Concomitant]
     Active Substance: RUFINAMIDE
  8. FLOMAX [MORNIFLUMATE] [Concomitant]
     Active Substance: MORNIFLUMATE
  9. ALBUTEROL [SALBUTAMOL] [Concomitant]
     Active Substance: ALBUTEROL
  10. ATIVAN [Concomitant]
     Active Substance: LORAZEPAM
  11. POTASSIUM [Concomitant]
     Active Substance: POTASSIUM
  12. VITAMIN D [VITAMIN D NOS] [Concomitant]
     Active Substance: VITAMIN D NOS
  13. GLYCOPYRROLATE. [Concomitant]
     Active Substance: GLYCOPYRROLATE
  14. CALCITONIN [Concomitant]
     Active Substance: CALCITONIN
  15. KEPPRA [Concomitant]
     Active Substance: LEVETIRACETAM
  16. OXCARBAZEPINE. [Concomitant]
     Active Substance: OXCARBAZEPINE
  17. DIASTAT [DIAZEPAM] [Concomitant]
  18. PULMICORT TURBUHALER [Concomitant]
     Active Substance: BUDESONIDE
  19. TRILEPTAL [Concomitant]
     Active Substance: OXCARBAZEPINE
  20. CULTURELLE [Concomitant]
     Active Substance: LACTOBACILLUS RHAMNOSUS
  21. LORATADINE. [Concomitant]
     Active Substance: LORATADINE
  22. LORAZEPAM. [Concomitant]
     Active Substance: LORAZEPAM
  23. COENZYME Q10 [Concomitant]
     Active Substance: DIETARY SUPPLEMENT\UBIDECARENONE
  24. IBUPROFEN. [Concomitant]
     Active Substance: IBUPROFEN
  25. POTASSIUM CHLORIDE. [Concomitant]
     Active Substance: POTASSIUM CHLORIDE
  26. PRILOSEC [Concomitant]
     Active Substance: OMEPRAZOLE MAGNESIUM
  27. SAM?E [Concomitant]
     Active Substance: ADEMETIONINE

REACTIONS (1)
  - Pneumonia [Unknown]
